FAERS Safety Report 20991691 (Version 1)
Quarter: 2022Q2

REPORT INFORMATION
  Report Type: Spontaneous
  Country: DE (occurrence: DE)
  Receive Date: 20220622
  Receipt Date: 20220622
  Transmission Date: 20220721
  Serious: Yes (Hospitalization)
  Sender: FDA-Public Use
  Company Number: DE-ROCHE-3109597

PATIENT
  Age: 72 Year
  Sex: Female
  Weight: 67 kg

DRUGS (4)
  1. LEUCOVORIN [Suspect]
     Active Substance: LEUCOVORIN
     Indication: Neoplasm
     Dosage: 700 MILLIGRAM (MOST RECENT DOSE RECEIVED ON 07/APR/2022)
     Route: 042
     Dates: start: 20211208
  2. IRINOTECAN [Suspect]
     Active Substance: IRINOTECAN
     Indication: Neoplasm
     Dosage: 263 MILLIGRAM (MOST RECENT DOSE RECEIVED ON 07/APR/2022)
     Route: 042
     Dates: start: 20211208
  3. FLUOROURACIL [Suspect]
     Active Substance: FLUOROURACIL
     Indication: Neoplasm
     Dosage: 4200 MILLIGRAM (MOST RECENT DOSE RECEIVED ON 07/APR/2022)
     Route: 042
     Dates: start: 20211208
  4. OXALIPLATIN [Suspect]
     Active Substance: OXALIPLATIN
     Indication: Neoplasm
     Dosage: 149 MILLIGRAM
     Route: 042
     Dates: start: 20211208

REACTIONS (1)
  - General physical health deterioration [Recovered/Resolved]

NARRATIVE: CASE EVENT DATE: 20220410
